FAERS Safety Report 9442069 (Version 1)
Quarter: 2013Q3

REPORT INFORMATION
  Report Type: Spontaneous
  Country: US (occurrence: US)
  Receive Date: 20130806
  Receipt Date: 20130806
  Transmission Date: 20140515
  Serious: Yes (Hospitalization)
  Sender: FDA-Public Use
  Company Number: US-UCBSA-094084

PATIENT
  Age: 16 Year
  Sex: Female

DRUGS (5)
  1. METHYLPHENIDATE [Suspect]
     Indication: ATTENTION DEFICIT/HYPERACTIVITY DISORDER
  2. SERTRALINE [Suspect]
     Indication: MOOD ALTERED
  3. ARIPIPRAZOLE [Concomitant]
     Indication: MOOD ALTERED
  4. ELETRIPTAN [Concomitant]
     Indication: MIGRAINE
  5. LITHIUM [Concomitant]
     Indication: MOOD ALTERED

REACTIONS (1)
  - Cerebral vasoconstriction [Recovered/Resolved]
